FAERS Safety Report 23822471 (Version 1)
Quarter: 2024Q2

REPORT INFORMATION
  Report Type: Spontaneous
  Country: US (occurrence: None)
  Receive Date: 20240504
  Receipt Date: 20240504
  Transmission Date: 20240716
  Serious: Yes (Hospitalization)
  Sender: FDA-Public Use
  Company Number: None

PATIENT
  Age: 62 Year
  Sex: Male

DRUGS (1)
  1. TIRZEPATIDE [Suspect]
     Active Substance: TIRZEPATIDE
     Dosage: 2.5 MG QWEEK SQ?
     Route: 058
     Dates: start: 20240311, end: 20240319

REACTIONS (5)
  - Drug intolerance [None]
  - Diarrhoea [None]
  - Drug ineffective [None]
  - Dehydration [None]
  - Hypokalaemia [None]

NARRATIVE: CASE EVENT DATE: 20240319
